FAERS Safety Report 23602841 (Version 4)
Quarter: 2025Q4

REPORT INFORMATION
  Report Type: Spontaneous
  Country: GB (occurrence: GB)
  Receive Date: 20240306
  Receipt Date: 20251020
  Transmission Date: 20260118
  Serious: Yes (Hospitalization)
  Sender: AMGEN
  Company Number: GB-Vifor (International) Inc.-VIT-2024-01746

PATIENT
  Age: 61 Year
  Sex: Female
  Weight: 67 kg

DRUGS (10)
  1. TAVNEOS [Suspect]
     Active Substance: AVACOPAN
     Indication: Anti-neutrophil cytoplasmic antibody positive vasculitis
     Dosage: DATE OF LAST DOSE PRIOR TO EVENT ONSET: 14-NOV-2023
     Route: 048
     Dates: start: 20231107, end: 20241202
  2. LEVOTHYROXINE [Concomitant]
     Active Substance: LEVOTHYROXINE
     Indication: Hypothyroidism
     Dosage: 75 MICROGRAM, QD (ONGOING)
     Route: 048
     Dates: start: 200506
  3. COTRIMOXAZOLE [Concomitant]
     Active Substance: SULFAMETHOXAZOLE\TRIMETHOPRIM
     Indication: Anti-neutrophil cytoplasmic antibody positive vasculitis
     Dosage: 480 MILLIGRAM, QD (ONGOING)
     Route: 048
     Dates: start: 20231031
  4. CALCIUM CARBONATE\CHOLECALCIFEROL [Concomitant]
     Active Substance: CALCIUM CARBONATE\CHOLECALCIFEROL
     Indication: Anti-neutrophil cytoplasmic antibody positive vasculitis
     Dosage: 3 GRAM, QD (ONGOING)
     Route: 048
     Dates: start: 20231031, end: 20240415
  5. CYCLOPHOSPHAMIDE [Concomitant]
     Active Substance: CYCLOPHOSPHAMIDE
     Indication: Anti-neutrophil cytoplasmic antibody positive vasculitis
     Dosage: 700 MILLIGRAM, Q2WK
     Route: 040
     Dates: start: 20231031, end: 20231114
  6. PREDNISOLONE [Concomitant]
     Active Substance: PREDNISOLONE
     Indication: Anti-neutrophil cytoplasmic antibody positive vasculitis
     Dosage: 30 MILLIGRAM, QD (COMPLETION OF PLANNED COURSE)
     Route: 048
     Dates: start: 20231111, end: 20231205
  7. RITUXIMAB [Concomitant]
     Active Substance: RITUXIMAB
     Indication: Anti-neutrophil cytoplasmic antibody positive vasculitis
     Dosage: 1 GRAM, Q2WK
     Route: 040
     Dates: start: 20240108, end: 20240108
  8. RITUXIMAB [Concomitant]
     Active Substance: RITUXIMAB
     Dosage: 1 GRAM, Q2WK
     Route: 040
     Dates: start: 20240122, end: 20240122
  9. RITUXIMAB [Concomitant]
     Active Substance: RITUXIMAB
     Dosage: 500 MILLIGRAM, AS NECESSARY
     Route: 040
     Dates: start: 20241209, end: 20241209
  10. METHYLPREDNISOLONE [Concomitant]
     Active Substance: METHYLPREDNISOLONE
     Indication: Anti-neutrophil cytoplasmic antibody positive vasculitis
     Dosage: 500 MILLIGRAM, QD
     Route: 040
     Dates: start: 20231020, end: 20231022

REACTIONS (3)
  - Escherichia urinary tract infection [Recovered/Resolved]
  - Rash [Recovered/Resolved]
  - Drug hypersensitivity [Recovered/Resolved]

NARRATIVE: CASE EVENT DATE: 20231115
